FAERS Safety Report 8823489 (Version 7)
Quarter: 2013Q1

REPORT INFORMATION
  Report Type: Spontaneous
  Country: US (occurrence: US)
  Receive Date: 20121003
  Receipt Date: 20130213
  Transmission Date: 20140127
  Serious: No
  Sender: FDA-Public Use
  Company Number: US-VERTEX PHARMACEUTICAL INC.-2012-021813

PATIENT
  Age: 61 None
  Sex: Male
  Weight: 69 kg

DRUGS (3)
  1. INCIVEK [Suspect]
     Indication: HEPATITIS C
     Dosage: 750 MG, TID
     Route: 048
     Dates: start: 20120914, end: 201212
  2. RIBAVIRIN [Suspect]
     Indication: HEPATITIS C
     Dosage: 600 MG AM, 400 MG PM, QD
     Route: 048
     Dates: start: 20120914
  3. PEGINTERFERON ALFA-2A [Suspect]
     Indication: HEPATITIS C
     Dosage: 96 ?G, QW
     Route: 058
     Dates: start: 20120914

REACTIONS (23)
  - Drug dose omission [Recovered/Resolved]
  - Inappropriate schedule of drug administration [Recovered/Resolved]
  - Incorrect dose administered [Recovered/Resolved]
  - White blood cell count decreased [Unknown]
  - Dizziness [Not Recovered/Not Resolved]
  - Dyspnoea [Unknown]
  - Hypoaesthesia [Unknown]
  - Influenza like illness [Unknown]
  - Pyrexia [Not Recovered/Not Resolved]
  - Bowel movement irregularity [Unknown]
  - Headache [Unknown]
  - Chills [Unknown]
  - Hyperhidrosis [Unknown]
  - Gastrooesophageal reflux disease [Recovered/Resolved]
  - Injection site reaction [Unknown]
  - Erythema [Unknown]
  - Fatigue [Unknown]
  - Local swelling [Unknown]
  - Rash [Not Recovered/Not Resolved]
  - Anorectal discomfort [Not Recovered/Not Resolved]
  - Haemorrhoids [Not Recovered/Not Resolved]
  - Anal pruritus [Not Recovered/Not Resolved]
  - Pruritus [Not Recovered/Not Resolved]
